FAERS Safety Report 16283185 (Version 1)
Quarter: 2019Q2

REPORT INFORMATION
  Report Type: Spontaneous
  Country: FR (occurrence: FR)
  Receive Date: 20190507
  Receipt Date: 20190507
  Transmission Date: 20190711
  Serious: Yes (Other)
  Sender: FDA-Public Use
  Company Number: FR-009507513-1905FRA000502

PATIENT
  Age: 62 Year
  Sex: Male

DRUGS (7)
  1. PREVISCAN [Concomitant]
  2. EPCLUSA [Suspect]
     Active Substance: SOFOSBUVIR\VELPATASVIR
     Indication: CHRONIC HEPATITIS C
     Dosage: UNK
     Route: 065
     Dates: start: 201710, end: 201801
  3. ALDACTONE HCT [Concomitant]
  4. RAMIPRIL. [Concomitant]
     Active Substance: RAMIPRIL
  5. RIBAVIRIN. [Suspect]
     Active Substance: RIBAVIRIN
     Indication: CHRONIC HEPATITIS C
     Dosage: UNK
     Route: 065
     Dates: start: 201710, end: 201801
  6. LYRICA [Concomitant]
     Active Substance: PREGABALIN
  7. FUROSEMIDE. [Concomitant]
     Active Substance: FUROSEMIDE

REACTIONS (3)
  - Genotype drug resistance test positive [Unknown]
  - Hepatitis C [Unknown]
  - Treatment failure [Unknown]

NARRATIVE: CASE EVENT DATE: 201804
